APPROVED DRUG PRODUCT: LARIAM
Active Ingredient: MEFLOQUINE HYDROCHLORIDE
Strength: 250MG **Federal Register determination that product was not discontinued or withdrawn for safety or effectiveness reasons**
Dosage Form/Route: TABLET;ORAL
Application: N019591 | Product #001
Applicant: HOFFMANN LA ROCHE INC
Approved: May 2, 1989 | RLD: Yes | RS: No | Type: DISCN